FAERS Safety Report 7049128-0 (Version None)
Quarter: 2010Q4

REPORT INFORMATION
  Report Type: 
  Country: None (occurrence: None)
  Receive Date: 20101018
  Receipt Date: 20101007
  Transmission Date: 20110411
  Serious: Yes (Other)
  Sender: FDA-Public Use
  Company Number: CN-JNJFOC-20101004149

PATIENT

DRUGS (1)
  1. SPORANOX [Suspect]
     Indication: FUNGAL INFECTION
     Dosage: 14TH BOTTLE OF ITRACONAZOLE INJECTION IN HOSPITAL
     Route: 042

REACTIONS (2)
  - PRODUCT QUALITY ISSUE [None]
  - PYREXIA [None]
